FAERS Safety Report 14745282 (Version 3)
Quarter: 2018Q3

REPORT INFORMATION
  Report Type: Spontaneous
  Country: US (occurrence: US)
  Receive Date: 20180411
  Receipt Date: 20180717
  Transmission Date: 20181010
  Serious: Yes (Other)
  Sender: FDA-Public Use
  Company Number: US-PFIZER INC-2018139049

PATIENT
  Age: 46 Year
  Sex: Male
  Weight: 90 kg

DRUGS (4)
  1. ZOSYN [Suspect]
     Active Substance: PIPERACILLIN SODIUM\TAZOBACTAM SODIUM
     Indication: SUBCUTANEOUS ABSCESS
     Dosage: UNK
     Dates: start: 20170617, end: 20170617
  2. MORPHINE [Concomitant]
     Active Substance: MORPHINE
     Indication: PAIN
     Dosage: 2 MG, 1X/DAY (EVERY 24 HOURS)
     Route: 041
     Dates: start: 20170604, end: 20170704
  3. CLINDAMYCIN. [Concomitant]
     Active Substance: CLINDAMYCIN
     Indication: SUBCUTANEOUS ABSCESS
     Dosage: UNK
     Dates: start: 20170617
  4. VANCOMYCIN [Concomitant]
     Active Substance: VANCOMYCIN
     Indication: SUBCUTANEOUS ABSCESS
     Dosage: UNK
     Route: 042
     Dates: start: 20170617

REACTIONS (3)
  - Stevens-Johnson syndrome [Recovered/Resolved]
  - Toxic epidermal necrolysis [Unknown]
  - Anaphylactic reaction [Unknown]

NARRATIVE: CASE EVENT DATE: 20170617
